FAERS Safety Report 5471001-X (Version None)
Quarter: 2007Q3

REPORT INFORMATION
  Report Type: 
  Country: None (occurrence: None)
  Receive Date: 20070928
  Receipt Date: 20070924
  Transmission Date: 20080115
  Serious: Yes (Other)
  Sender: FDA-Public Use
  Company Number: A0684756A

PATIENT
  Age: 40 Year
  Sex: Female

DRUGS (4)
  1. WELLBUTRIN XL [Suspect]
     Route: 048
  2. BUPROPION HYDROCHLORIDE [Suspect]
     Route: 065
  3. PROZAC [Suspect]
     Route: 065
  4. LORAZEPAM [Concomitant]

REACTIONS (6)
  - CRYING [None]
  - DRUG EFFECT DECREASED [None]
  - INSOMNIA [None]
  - NO THERAPEUTIC RESPONSE [None]
  - SUICIDAL IDEATION [None]
  - SUICIDE ATTEMPT [None]
